FAERS Safety Report 17229895 (Version 1)
Quarter: 2020Q1

REPORT INFORMATION
  Report Type: Spontaneous
  Country: US (occurrence: US)
  Receive Date: 20200103
  Receipt Date: 20200103
  Transmission Date: 20200409
  Serious: Yes (Death, Hospitalization, Other)
  Sender: FDA-Public Use
  Company Number: NVSC2019US084285

PATIENT
  Age: 82 Year
  Sex: Male

DRUGS (1)
  1. KYMRIAH [Suspect]
     Active Substance: TISAGENLECLEUCEL
     Indication: DIFFUSE LARGE B-CELL LYMPHOMA RECURRENT
     Dosage: UNK UNK, ONCE/SINGLE
     Route: 042
     Dates: start: 20191224

REACTIONS (4)
  - Infection [Unknown]
  - Multiple organ dysfunction syndrome [Fatal]
  - Cytokine release syndrome [Unknown]
  - Inflammatory marker decreased [Recovering/Resolving]

NARRATIVE: CASE EVENT DATE: 20191224
